FAERS Safety Report 20973964 (Version 1)
Quarter: 2022Q2

REPORT INFORMATION
  Report Type: Report from Study
  Country: MX (occurrence: MX)
  Receive Date: 20220617
  Receipt Date: 20220617
  Transmission Date: 20220721
  Serious: Yes (Death)
  Sender: FDA-Public Use
  Company Number: MX-NOVARTISPH-NVSC2022MX139413

PATIENT
  Age: 92 Year
  Sex: Male
  Weight: 172 kg

DRUGS (2)
  1. EXELON [Suspect]
     Active Substance: RIVASTIGMINE TARTRATE
     Indication: Delusion
     Dosage: 1 DOSAGE FORM, QD (TRANSDERMAL, DIRECTLY ON THE SKIN)
     Route: 062
     Dates: start: 202111
  2. EXELON [Suspect]
     Active Substance: RIVASTIGMINE TARTRATE
     Indication: Feeling abnormal

REACTIONS (3)
  - Respiratory disorder [Fatal]
  - Cardiac disorder [Fatal]
  - Off label use [Unknown]

NARRATIVE: CASE EVENT DATE: 20220524
